FAERS Safety Report 8895672 (Version 2)
Quarter: 2013Q2

REPORT INFORMATION
  Report Type: Report from Study
  Country: DE (occurrence: DE)
  Receive Date: 20121108
  Receipt Date: 20130518
  Transmission Date: 20140414
  Serious: Yes (Hospitalization, Other)
  Sender: FDA-Public Use
  Company Number: DE-TEVA-368474GER

PATIENT
  Age: 50 Year
  Sex: Female
  Weight: 50 kg

DRUGS (4)
  1. MYOCET [Suspect]
     Indication: BREAST CANCER
     Route: 042
     Dates: start: 20120905, end: 20121112
  2. PACLITAXEL [Suspect]
     Indication: BREAST CANCER
     Route: 042
     Dates: start: 20120905, end: 20121112
  3. HERCEPTIN [Suspect]
     Indication: BREAST CANCER
     Route: 042
     Dates: start: 20120905, end: 20121112
  4. TYVERB [Suspect]
     Indication: BREAST CANCER
     Dosage: 750 MILLIGRAM DAILY;
     Route: 048
     Dates: start: 20120905, end: 20121025

REACTIONS (10)
  - Acute respiratory distress syndrome [Unknown]
  - Pneumonitis [Unknown]
  - Mucosal inflammation [Recovered/Resolved]
  - Cachexia [Unknown]
  - Skin toxicity [Unknown]
  - Fatigue [Unknown]
  - General physical health deterioration [Unknown]
  - Dyspnoea [Unknown]
  - Pyrexia [Unknown]
  - Sinus tachycardia [Unknown]
